FAERS Safety Report 9379084 (Version 1)
Quarter: 2013Q3

REPORT INFORMATION
  Report Type: Report from Study
  Country: US (occurrence: US)
  Receive Date: 20130702
  Receipt Date: 20130702
  Transmission Date: 20140515
  Serious: Yes (Hospitalization)
  Sender: FDA-Public Use
  Company Number: PHEH2013US013847

PATIENT
  Age: 55 Year
  Sex: Male

DRUGS (6)
  1. TOBI PODHALER [Suspect]
     Indication: CYSTIC FIBROSIS
     Dosage: 112 MG, BID
     Dates: start: 20130525, end: 20130529
  2. CAYSTON [Concomitant]
     Dosage: UNK
  3. COLISTIN [Concomitant]
     Dosage: UNK
  4. PULMOZYME [Concomitant]
     Dosage: UNK
  5. ALBUTEROL [Concomitant]
     Dosage: UNK
  6. ZANTAC [Concomitant]
     Dosage: UNK

REACTIONS (4)
  - Lung infection [Recovered/Resolved]
  - Haemorrhage [Recovered/Resolved]
  - Increased viscosity of bronchial secretion [Recovered/Resolved]
  - Dyspnoea [Recovered/Resolved]
